FAERS Safety Report 14013225 (Version 2)
Quarter: 2017Q4

REPORT INFORMATION
  Report Type: Spontaneous
  Country: FR (occurrence: FR)
  Receive Date: 20170926
  Receipt Date: 20171117
  Transmission Date: 20180321
  Serious: Yes (Other)
  Sender: FDA-Public Use
  Company Number: FR-MERCK KGAA-2027787

PATIENT
  Age: 61 Year
  Sex: Female

DRUGS (1)
  1. NOVOTHYROX [Suspect]
     Active Substance: LEVOTHYROXINE SODIUM
     Indication: HYPOTHYROIDISM
     Route: 048

REACTIONS (13)
  - Abdominal distension [Recovering/Resolving]
  - Product formulation issue [Not Recovered/Not Resolved]
  - Muscle spasms [Not Recovered/Not Resolved]
  - Fatigue [Not Recovered/Not Resolved]
  - Gastrointestinal disorder [Recovered/Resolved]
  - Nausea [Recovering/Resolving]
  - Arthralgia [Not Recovered/Not Resolved]
  - Alopecia [Not Recovered/Not Resolved]
  - Dizziness [Not Recovered/Not Resolved]
  - Weight increased [Not Recovered/Not Resolved]
  - Diarrhoea [Recovering/Resolving]
  - Sleep disorder [Not Recovered/Not Resolved]
  - Blood thyroid stimulating hormone normal [Recovered/Resolved]

NARRATIVE: CASE EVENT DATE: 2017
